FAERS Safety Report 18238958 (Version 1)
Quarter: 2020Q3

REPORT INFORMATION
  Report Type: Spontaneous
  Country: US (occurrence: US)
  Receive Date: 20200907
  Receipt Date: 20200907
  Transmission Date: 20201103
  Serious: No
  Sender: FDA-Public Use
  Company Number: US-009507513-2009USA000462

PATIENT
  Sex: Female

DRUGS (3)
  1. NEXPLANON [Suspect]
     Active Substance: ETONOGESTREL
     Indication: CATAPLEXY
  2. NEXPLANON [Suspect]
     Active Substance: ETONOGESTREL
     Indication: NARCOLEPSY
  3. NEXPLANON [Suspect]
     Active Substance: ETONOGESTREL
     Indication: CONTRACEPTION
     Dosage: 1 IMPLANT (68 MG), (FREQUENCY REPORTED AS DAILY)
     Route: 059
     Dates: start: 2019

REACTIONS (4)
  - Libido decreased [Unknown]
  - Product use in unapproved indication [Unknown]
  - Abdominal distension [Unknown]
  - Abdominal pain upper [Unknown]

NARRATIVE: CASE EVENT DATE: 2019
